FAERS Safety Report 4983811-3 (Version None)
Quarter: 2006Q1

REPORT INFORMATION
  Report Type: 
  Country: None (occurrence: None)
  Receive Date: 20060301
  Receipt Date: 20051128
  Transmission Date: 20060701
  Serious: No
  Sender: FDA-Public Use
  Company Number: S05-USA-05047-01

PATIENT
  Age: 69 Year
  Sex: Female

DRUGS (11)
  1. NAMENDA [Suspect]
     Indication: MEMORY IMPAIRMENT
     Dosage: 16 MG QD PO
     Route: 048
     Dates: start: 20051127, end: 20051203
  2. NAMENDA [Suspect]
     Indication: MEMORY IMPAIRMENT
     Dosage: 10 MG BID PO
     Route: 048
     Dates: start: 20051204
  3. NAMENDA [Suspect]
     Indication: MEMORY IMPAIRMENT
     Dosage: 5 MG QD PO
     Route: 048
     Dates: start: 20051113, end: 20051119
  4. NAMENDA [Suspect]
     Indication: MEMORY IMPAIRMENT
     Dosage: 5 MG BID PO
     Route: 048
     Dates: start: 20051120, end: 20051126
  5. HYDROCHLOROTHIAZIDE [Suspect]
     Indication: HYPERTENSION
     Dosage: 25 MG QD PO
     Route: 048
     Dates: start: 20051101, end: 20051121
  6. ARICEPT [Concomitant]
  7. NORVASC [Concomitant]
  8. QUINAPRIL [Concomitant]
  9. FOSAMAX (ALENDRONAE SODIUM) [Concomitant]
  10. LEXAPRO (ESCIALOPRAM) [Concomitant]
  11. BUTALBITAL [Concomitant]

REACTIONS (4)
  - ASTHENIA [None]
  - HYPOTENSION [None]
  - PAIN IN EXTREMITY [None]
  - SOMNOLENCE [None]
